FAERS Safety Report 10985677 (Version 1)
Quarter: 2015Q1

REPORT INFORMATION
  Report Type: Spontaneous
  Country: US (occurrence: None)
  Receive Date: 20150324
  Receipt Date: 20150324
  Transmission Date: 20150721
  Serious: Yes (Hospitalization)
  Sender: FDA-Public Use
  Company Number: 2014STPI000082

PATIENT
  Age: 20 Year
  Sex: Male
  Weight: 84 kg

DRUGS (1)
  1. ONCASPAR [Suspect]
     Active Substance: PEGASPARGASE
     Indication: LYMPHOCYTIC LEUKAEMIA
     Route: 042
     Dates: end: 20140110

REACTIONS (5)
  - Antithrombin III decreased [None]
  - Renal impairment [None]
  - Weight decreased [None]
  - Pancreatitis [None]
  - Hyperglycaemia [None]

NARRATIVE: CASE EVENT DATE: 20140129
